FAERS Safety Report 9901327 (Version 1)
Quarter: 2014Q1

REPORT INFORMATION
  Report Type: Spontaneous
  Country: US (occurrence: US)
  Receive Date: 20140217
  Receipt Date: 20140217
  Transmission Date: 20141002
  Serious: No
  Sender: FDA-Public Use
  Company Number: US-BAYER-2014-024173

PATIENT
  Age: 69 Year
  Sex: Female
  Weight: 54 kg

DRUGS (2)
  1. ALEVE CAPLET [Suspect]
     Indication: INFLAMMATION
     Dosage: 1 DF, QD
     Route: 048
  2. TYLENOL [PARACETAMOL] [Concomitant]

REACTIONS (2)
  - Intentional drug misuse [None]
  - Incorrect drug administration duration [None]
